FAERS Safety Report 9006764 (Version 2)
Quarter: 2014Q2

REPORT INFORMATION
  Report Type: Report from Study
  Country: CA (occurrence: CA)
  Receive Date: 20130110
  Receipt Date: 20140424
  Transmission Date: 20141212
  Serious: Yes (Other)
  Sender: FDA-Public Use
  Company Number: CA-JNJFOC-20130102151

PATIENT
  Age: 42 Year
  Sex: Female
  Weight: 81 kg

DRUGS (6)
  1. REMICADE [Suspect]
     Indication: PSORIATIC ARTHROPATHY
     Route: 042
     Dates: start: 20090808, end: 20120830
  2. METHOTREXATE [Concomitant]
     Route: 048
  3. METHOTREXATE [Concomitant]
     Route: 048
  4. METOPROLOL [Concomitant]
     Route: 065
  5. FOLIC ACID [Concomitant]
     Route: 048
  6. AMIODARONE [Concomitant]
     Route: 048

REACTIONS (2)
  - Mitral valve replacement [Recovering/Resolving]
  - Post procedural infection [Unknown]
